FAERS Safety Report 8943501 (Version 1)
Quarter: 2012Q4

REPORT INFORMATION
  Report Type: Report from Study
  Country: NL (occurrence: NL)
  Receive Date: 20121203
  Receipt Date: 20121203
  Transmission Date: 20130627
  Serious: Yes (Hospitalization)
  Sender: FDA-Public Use
  Company Number: NL-GLAXOSMITHKLINE-Z0017283A

PATIENT
  Age: 48 Year
  Sex: Male
  Weight: 89.4 kg

DRUGS (4)
  1. OFATUMUMAB [Suspect]
     Indication: DIFFUSE LARGE B-CELL LYMPHOMA RECURRENT
     Dosage: 1000MGM2 Cyclic
     Route: 042
     Dates: start: 20120927
  2. DEXAMETHASONE [Suspect]
     Indication: DIFFUSE LARGE B-CELL LYMPHOMA RECURRENT
     Dosage: 40MG Every 3 weeks
     Route: 042
     Dates: start: 20120927
  3. CISPLATIN [Suspect]
     Indication: DIFFUSE LARGE B-CELL LYMPHOMA RECURRENT
     Dosage: 100MGM2 Every 3 weeks
     Route: 042
     Dates: start: 20120927
  4. CYTARABINE [Suspect]
     Indication: DIFFUSE LARGE B-CELL LYMPHOMA RECURRENT
     Dosage: 4GM2 Every 3 weeks
     Route: 042
     Dates: start: 20120928

REACTIONS (1)
  - Febrile neutropenia [Recovered/Resolved]
